FAERS Safety Report 5846671-4 (Version None)
Quarter: 2008Q3

REPORT INFORMATION
  Report Type: 
  Country: None (occurrence: None)
  Receive Date: 20080815
  Receipt Date: 20080808
  Transmission Date: 20090109
  Serious: Yes (Life-Threatening)
  Sender: FDA-Public Use
  Company Number: B0532485A

PATIENT
  Age: 80 Year
  Sex: Male

DRUGS (5)
  1. ARIXTRA [Suspect]
     Dosage: 7.5MG PER DAY
     Route: 065
     Dates: start: 20080504, end: 20080601
  2. SERETIDE DISKUS [Concomitant]
     Indication: DRUG USE FOR UNKNOWN INDICATION
     Route: 055
  3. VENTOLIN [Concomitant]
     Indication: DRUG USE FOR UNKNOWN INDICATION
     Route: 065
  4. COZAAR [Concomitant]
     Indication: DRUG USE FOR UNKNOWN INDICATION
     Dosage: 50MG PER DAY
     Route: 048
  5. HYPERIUM [Concomitant]
     Indication: DRUG USE FOR UNKNOWN INDICATION
     Dosage: 1MG PER DAY
     Route: 048

REACTIONS (9)
  - ATRIAL FLUTTER [None]
  - BRONCHITIS HAEMOPHILUS [None]
  - DYSPNOEA [None]
  - INCORRECT DRUG ADMINISTRATION DURATION [None]
  - NOSOCOMIAL INFECTION [None]
  - PERICARDIAL EFFUSION [None]
  - PERICARDIAL HAEMORRHAGE [None]
  - RIGHT VENTRICULAR FAILURE [None]
  - TACHYCARDIA [None]
